FAERS Safety Report 19400560 (Version 1)
Quarter: 2021Q2

REPORT INFORMATION
  Report Type: Spontaneous
  Country: US (occurrence: US)
  Receive Date: 20210610
  Receipt Date: 20210610
  Transmission Date: 20210717
  Serious: Yes (Other)
  Sender: FDA-Public Use
  Company Number: NVSC2021US129378

PATIENT
  Age: 13 Year
  Sex: Male

DRUGS (6)
  1. VINCRISTINE [Suspect]
     Active Substance: VINCRISTINE
     Indication: LYMPHANGIOMA
  2. VINCRISTINE [Suspect]
     Active Substance: VINCRISTINE
     Indication: CONDITION AGGRAVATED
     Dosage: UNK, QW
     Route: 042
  3. ZOLEDRONIC ACID [Suspect]
     Active Substance: ZOLEDRONIC ACID
     Indication: BONE LESION
  4. CELEBREX [Suspect]
     Active Substance: CELECOXIB
     Indication: LYMPHANGIOMA
     Dosage: UNK
     Route: 065
  5. SIROLIMUS. [Suspect]
     Active Substance: SIROLIMUS
     Indication: LYMPHANGIOMA
     Dosage: UNK
     Route: 065
  6. ZOLEDRONIC ACID [Suspect]
     Active Substance: ZOLEDRONIC ACID
     Indication: LYMPHANGIOMA
     Dosage: UNK
     Route: 065

REACTIONS (13)
  - Hypoxia [Unknown]
  - Blood erythropoietin increased [Unknown]
  - N-ras gene mutation [Unknown]
  - Interstitial lung disease [Unknown]
  - Pleural effusion [Unknown]
  - Therapy non-responder [Unknown]
  - Pericardial effusion [Unknown]
  - Coagulopathy [Unknown]
  - Respiratory distress [Unknown]
  - Pulmonary function test decreased [Unknown]
  - Product use in unapproved indication [Unknown]
  - Cardiac tamponade [Unknown]
  - Lymphangioma [Unknown]
